FAERS Safety Report 7177906-6 (Version None)
Quarter: 2010Q4

REPORT INFORMATION
  Report Type: 
  Country: None (occurrence: None)
  Receive Date: 20101220
  Receipt Date: 20101209
  Transmission Date: 20110411
  Serious: Yes (Other)
  Sender: FDA-Public Use
  Company Number: DE-ASTRAZENECA-2010SE58456

PATIENT
  Age: 68 Year
  Sex: Female

DRUGS (5)
  1. BELOC-ZOK [Suspect]
     Route: 048
  2. EZETIMIBE/SIMVASTATIN [Concomitant]
  3. PANTOZOL [Concomitant]
  4. LOSARTAN [Concomitant]
  5. MARCUMAR [Concomitant]

REACTIONS (1)
  - OSTEONECROSIS OF JAW [None]
